FAERS Safety Report 7809014-2 (Version None)
Quarter: 2011Q4

REPORT INFORMATION
  Report Type: 
  Country: None (occurrence: None)
  Receive Date: 20111012
  Receipt Date: 20111012
  Transmission Date: 20120403
  Serious: No
  Sender: FDA-Public Use
  Company Number: None

PATIENT
  Age: 76 Year
  Sex: Female
  Weight: 82.553 kg

DRUGS (1)
  1. LYRICA [Suspect]

REACTIONS (3)
  - URTICARIA [None]
  - OEDEMA PERIPHERAL [None]
  - HEADACHE [None]
